FAERS Safety Report 11321024 (Version 1)
Quarter: 2015Q3

REPORT INFORMATION
  Report Type: Spontaneous
  Country: CA (occurrence: CA)
  Receive Date: 20150729
  Receipt Date: 20150729
  Transmission Date: 20151125
  Serious: Yes (Other)
  Sender: FDA-Public Use
  Company Number: CA-TEVA-581676ACC

PATIENT
  Age: 66 Year
  Sex: Female
  Weight: 72.64 kg

DRUGS (2)
  1. RISPERIDONE. [Concomitant]
     Active Substance: RISPERIDONE
     Route: 065
  2. SIMVASTATIN. [Suspect]
     Active Substance: SIMVASTATIN
     Indication: HYPERCHOLESTEROLAEMIA
     Dosage: 20 MILLIGRAM DAILY;
     Route: 048

REACTIONS (2)
  - Drug intolerance [Recovered/Resolved]
  - Schizoaffective disorder [Recovered/Resolved]
